FAERS Safety Report 6686633-0 (Version None)
Quarter: 2010Q2

REPORT INFORMATION
  Report Type: 
  Country: None (occurrence: None)
  Receive Date: 20100419
  Receipt Date: 20100405
  Transmission Date: 20101027
  Serious: Yes (Hospitalization)
  Sender: FDA-Public Use
  Company Number: US-ELI_LILLY_AND_COMPANY-US201004001373

PATIENT
  Sex: Female
  Weight: 104.31 kg

DRUGS (7)
  1. BYETTA [Suspect]
     Indication: TYPE 2 DIABETES MELLITUS
     Dosage: 5 UG, 2/D
     Route: 058
  2. BYETTA [Suspect]
     Dosage: 10 UG, 2/D
     Route: 058
  3. NIACIN [Concomitant]
  4. LISINOPRIL [Concomitant]
  5. AMARYL [Concomitant]
     Indication: TYPE 2 DIABETES MELLITUS
  6. ZETIA [Concomitant]
  7. MULTI-VITAMINS [Concomitant]

REACTIONS (8)
  - ARTHRITIS INFECTIVE [None]
  - ARTHROPATHY [None]
  - BLISTER [None]
  - DECREASED APPETITE [None]
  - FOOD ALLERGY [None]
  - INTENTIONAL DRUG MISUSE [None]
  - OEDEMA PERIPHERAL [None]
  - VOMITING [None]
